FAERS Safety Report 6356942-3 (Version None)
Quarter: 2009Q3

REPORT INFORMATION
  Report Type: 
  Country: None (occurrence: None)
  Receive Date: 20090915
  Receipt Date: 20090903
  Transmission Date: 20100115
  Serious: Yes (Other)
  Sender: FDA-Public Use
  Company Number: IN-JNJFOC-20090902436

PATIENT

DRUGS (2)
  1. INFLIXIMAB [Suspect]
     Dosage: 3-5 MG/KG OF INFLIXIMAB, 8 WEEKLY INFUSIONS
     Route: 042
  2. INFLIXIMAB [Suspect]
     Indication: PSORIATIC ARTHROPATHY
     Dosage: 3-5 MG/KG OF INFLIXIMAB INFUSED AT 0, 2, 6 WEEKS
     Route: 042

REACTIONS (1)
  - DISSEMINATED TUBERCULOSIS [None]
